FAERS Safety Report 8789264 (Version 1)
Quarter: 2012Q4

REPORT INFORMATION
  Report Type: Spontaneous
  Country: US (occurrence: None)
  Receive Date: 20120910
  Receipt Date: 20120910
  Transmission Date: 20130627
  Serious: Yes (Disabling, Other)
  Sender: FDA-Public Use
  Company Number: None

PATIENT
  Age: 52 Year
  Sex: Female
  Weight: 68.95 kg

DRUGS (5)
  1. PRISTIQ [Suspect]
     Indication: DEPRESSION
     Route: 048
     Dates: start: 20120615, end: 20120824
  2. SINGULAIR [Concomitant]
  3. BYETTA [Concomitant]
  4. GLUMETZA [Suspect]
  5. OTC ANTIHISTAMINE [Concomitant]

REACTIONS (7)
  - Arthralgia [None]
  - Nodule [None]
  - Arthralgia [None]
  - Gait disturbance [None]
  - Dysstasia [None]
  - Muscle fatigue [None]
  - Lethargy [None]
